FAERS Safety Report 7520733-8 (Version None)
Quarter: 2011Q2

REPORT INFORMATION
  Report Type: 
  Country: None (occurrence: None)
  Receive Date: 20110603
  Receipt Date: 20100415
  Transmission Date: 20111010
  Serious: Yes (Death, Hospitalization)
  Sender: FDA-Public Use
  Company Number: JP-BAYER-200914313BYL

PATIENT
  Age: 54 Year
  Sex: Male
  Weight: 72 kg

DRUGS (5)
  1. SORAFENIB (RAF KINASE INHIBITOR) [Suspect]
     Dosage: 800 MG (DAILY DOSE), ORAL
     Route: 048
     Dates: start: 20091204, end: 20091217
  2. SORAFENIB (RAF KINASE INHIBITOR) [Suspect]
     Indication: RENAL CELL CARCINOMA
     Dosage: 800 MG (DAILY DOSE), ORAL
     Route: 048
     Dates: start: 20090917, end: 20091029
  3. SORAFENIB (RAF KINASE INHIBITOR) [Suspect]
     Dosage: 400 MG (DAILY DOSE), ORAL
     Route: 048
     Dates: start: 20091116, end: 20091203
  4. SORAFENIB (RAF KINASE INHIBITOR) [Suspect]
     Dosage: 400 MG (DAILY DOSE), ORAL
     Route: 048
     Dates: start: 20091218, end: 20091222
  5. HIRUDOID [Concomitant]
     Route: 061
     Dates: start: 20090917, end: 20091222

REACTIONS (7)
  - RASH GENERALISED [None]
  - MALAISE [None]
  - PALMAR-PLANTAR ERYTHRODYSAESTHESIA SYNDROME [None]
  - STOMATITIS [None]
  - NAUSEA [None]
  - BLOOD PRESSURE INCREASED [None]
  - RENAL CELL CARCINOMA [None]
